FAERS Safety Report 16555382 (Version 1)
Quarter: 2019Q3

REPORT INFORMATION
  Report Type: Spontaneous
  Country: DE (occurrence: DE)
  Receive Date: 20190710
  Receipt Date: 20190710
  Transmission Date: 20191004
  Serious: Yes (Other)
  Sender: FDA-Public Use
  Company Number: DE-PROVELL PHARMACEUTICALS-2070642

PATIENT
  Sex: Female

DRUGS (7)
  1. RUPAFIN [Concomitant]
     Active Substance: RUPATADINE FUMARATE
  2. QUENSYL [Concomitant]
     Active Substance: HYDROXYCHLOROQUINE
  3. EUTHYROX [Suspect]
     Active Substance: LEVOTHYROXINE SODIUM
     Indication: PRODUCT USED FOR UNKNOWN INDICATION
  4. LETROZOLE. [Concomitant]
     Active Substance: LETROZOLE
  5. LODOTRA [Concomitant]
     Active Substance: PREDNISONE
  6. DEKRISTOL [Concomitant]
     Active Substance: CHOLECALCIFEROL
  7. OMEPRAZOLE. [Concomitant]
     Active Substance: OMEPRAZOLE

REACTIONS (3)
  - Fatigue [None]
  - Neoplasm malignant [None]
  - Upper limb fracture [None]
